FAERS Safety Report 10657161 (Version 1)
Quarter: 2014Q4

REPORT INFORMATION
  Report Type: Spontaneous
  Country: FR (occurrence: None)
  Receive Date: 20141215
  Receipt Date: 20141215
  Transmission Date: 20150529
  Serious: Yes (Hospitalization)
  Sender: FDA-Public Use
  Company Number: FR2014GSK025062

PATIENT
  Age: 55 Year
  Sex: Male

DRUGS (4)
  1. INTELENCE [Concomitant]
     Active Substance: ETRAVIRINE
  2. AMLOR [Suspect]
     Active Substance: AMLODIPINE BESYLATE
     Indication: PRODUCT USED FOR UNKNOWN INDICATION
     Route: 048
  3. DEROXAT [Suspect]
     Active Substance: PAROXETINE HYDROCHLORIDE
     Indication: PRODUCT USED FOR UNKNOWN INDICATION
     Route: 048
  4. KIVEXA [Concomitant]
     Active Substance: ABACAVIR SULFATE\LAMIVUDINE

REACTIONS (6)
  - Poisoning deliberate [None]
  - Blood lactic acid increased [None]
  - Alcohol use [None]
  - Acute kidney injury [None]
  - Intentional overdose [None]
  - Vasoplegia syndrome [None]

NARRATIVE: CASE EVENT DATE: 20140824
